FAERS Safety Report 4815878-7 (Version None)
Quarter: 2005Q4

REPORT INFORMATION
  Report Type: 
  Country: None (occurrence: None)
  Receive Date: 20051031
  Receipt Date: 20051019
  Transmission Date: 20060501
  Serious: Yes (Hospitalization)
  Sender: FDA-Public Use
  Company Number: US-JNJFOC-20051003071

PATIENT
  Sex: Female
  Weight: 62.6 kg

DRUGS (2)
  1. FENTANYL [Suspect]
     Route: 062
     Dates: start: 20050301
  2. FENTANYL [Suspect]
     Route: 062
     Dates: start: 20050301

REACTIONS (7)
  - APPLICATION SITE DERMATITIS [None]
  - APPLICATION SITE ERYTHEMA [None]
  - APPLICATION SITE IRRITATION [None]
  - APPLICATION SITE PRURITUS [None]
  - CHOLELITHIASIS [None]
  - HYPERHIDROSIS [None]
  - SHOULDER PAIN [None]
